FAERS Safety Report 9490722 (Version 2)
Quarter: 2014Q1

REPORT INFORMATION
  Report Type: Report from Study
  Country: JP (occurrence: JP)
  Receive Date: 20130830
  Receipt Date: 20140124
  Transmission Date: 20141002
  Serious: Yes (Hospitalization)
  Sender: FDA-Public Use
  Company Number: JP-BAYER-2013-104555

PATIENT
  Age: 50 Year
  Sex: Male
  Weight: 63 kg

DRUGS (9)
  1. REGORAFENIB [Suspect]
     Indication: GASTROINTESTINAL STROMAL TUMOUR
     Dosage: DOSE: 160MG/DAY
     Route: 048
     Dates: start: 20130611, end: 20130718
  2. REGORAFENIB [Suspect]
     Indication: GASTROINTESTINAL STROMAL TUMOUR
     Dosage: DOSE: 120MG/DAY
     Route: 048
     Dates: start: 20130726, end: 20130826
  3. SEPAMIT [Concomitant]
     Indication: HYPERTENSION
     Dosage: DAILY DOSE 20 MG
     Route: 048
     Dates: start: 20130606
  4. BLOPRESS [Concomitant]
     Indication: HYPERTENSION
     Dosage: 4 MG, QD
     Route: 048
     Dates: start: 2011
  5. MIGLITOL [Concomitant]
     Indication: DIABETES MELLITUS
     Dosage: DAILY DOSE 100 MG
     Route: 048
     Dates: start: 1998
  6. HUMALOG MIX [Concomitant]
     Indication: DIABETES MELLITUS
     Dosage: 10 U, TID
     Route: 058
     Dates: start: 1998
  7. AZOPT [Concomitant]
     Indication: GLAUCOMA
     Dosage: UNK
     Route: 047
     Dates: start: 2008
  8. XALATAN [Concomitant]
     Indication: GLAUCOMA
     Dosage: UNK
     Route: 047
     Dates: start: 2008
  9. RYSMON [Concomitant]
     Indication: GLAUCOMA
     Dosage: UNK
     Route: 047
     Dates: start: 2008

REACTIONS (2)
  - Renal disorder [Not Recovered/Not Resolved]
  - Dehydration [Not Recovered/Not Resolved]
